FAERS Safety Report 10486109 (Version 3)
Quarter: 2014Q4

REPORT INFORMATION
  Report Type: Spontaneous
  Country: US (occurrence: None)
  Receive Date: 20140929
  Receipt Date: 20141014
  Transmission Date: 20150528
  Serious: Yes (Hospitalization, Other)
  Sender: FDA-Public Use
  Company Number: ADR-2014-01764

PATIENT
  Age: 45 Year
  Sex: Male

DRUGS (2)
  1. COMPOUNDED BACLOFEN INTRATHECAL 4,000MCG/ML [Suspect]
     Active Substance: BACLOFEN
     Indication: MUSCLE SPASTICITY
  2. DILAUDID [Suspect]
     Active Substance: HYDROMORPHONE HYDROCHLORIDE

REACTIONS (6)
  - Femur fracture [None]
  - Accidental overdose [None]
  - Altered state of consciousness [None]
  - Road traffic accident [None]
  - Lethargy [None]
  - Drug dispensing error [None]

NARRATIVE: CASE EVENT DATE: 20140918
